APPROVED DRUG PRODUCT: MILRINONE LACTATE
Active Ingredient: MILRINONE LACTATE
Strength: EQ 1MG BASE/ML
Dosage Form/Route: INJECTABLE;INJECTION
Application: A076013 | Product #001
Applicant: INTERNATIONAL MEDICATED SYSTEMS LTD
Approved: Aug 2, 2002 | RLD: No | RS: No | Type: DISCN